FAERS Safety Report 8776085 (Version 2)
Quarter: 2012Q4

REPORT INFORMATION
  Report Type: 
  Country: FR (occurrence: FR)
  Receive Date: 20120910
  Receipt Date: 20120910
  Transmission Date: 20130627
  Serious: Yes (Life-Threatening, Hospitalization, Other)
  Sender: FDA-Public Use
  Company Number: FR-009507513-2010SP027174

PATIENT

DRUGS (22)
  1. NORSET [Suspect]
     Indication: INSOMNIA
     Dosage: 15 mg, UNK
     Route: 048
     Dates: start: 20080916, end: 20080917
  2. NORSET [Suspect]
     Indication: AGITATION
  3. ATHYMIL [Suspect]
     Indication: PRODUCT USED FOR UNKNOWN INDICATION
     Dosage: 10 mg, UNK
     Dates: start: 20080915, end: 20080916
  4. LASILIX [Suspect]
     Indication: PRODUCT USED FOR UNKNOWN INDICATION
     Dosage: 40 mg, UNK
     Route: 048
     Dates: start: 20080912, end: 20080913
  5. TOPALGIC (TRAMADOL HYDROCHLORIDE) [Suspect]
     Indication: PRODUCT USED FOR UNKNOWN INDICATION
     Route: 048
     Dates: start: 20080912, end: 20080913
  6. LOXEN [Suspect]
     Indication: PRODUCT USED FOR UNKNOWN INDICATION
     Dosage: 20 mg, UNK
     Route: 048
     Dates: start: 20080916, end: 20080918
  7. SERESTA [Suspect]
     Indication: PRODUCT USED FOR UNKNOWN INDICATION
     Dosage: 50 mg, UNK
     Route: 048
     Dates: start: 20080916, end: 20080917
  8. TERCIAN [Suspect]
     Indication: PRODUCT USED FOR UNKNOWN INDICATION
     Route: 048
     Dates: start: 20080916, end: 20080917
  9. LOXAPAC (LOXAPINE SUCCINATE) [Suspect]
     Indication: PRODUCT USED FOR UNKNOWN INDICATION
     Route: 048
     Dates: start: 20080912, end: 20080915
  10. ACEPROMETAZINE MALEATE (+) MEPROBAMATE [Suspect]
     Indication: PRODUCT USED FOR UNKNOWN INDICATION
     Route: 048
     Dates: start: 20080912, end: 20080918
  11. TRIHEXYPHENIDYL HYDROCHLORIDE [Suspect]
     Indication: PRODUCT USED FOR UNKNOWN INDICATION
     Dosage: 2 mg, UNK
     Route: 048
     Dates: start: 20080912, end: 20080913
  12. RISPERDAL [Suspect]
     Indication: PRODUCT USED FOR UNKNOWN INDICATION
     Dosage: 1 mg, UNK
     Route: 048
     Dates: start: 20080912, end: 20080913
  13. RIVOTRIL [Suspect]
     Indication: PRODUCT USED FOR UNKNOWN INDICATION
     Dosage: 2 mg, UNK
     Route: 048
     Dates: start: 20080912, end: 20080916
  14. THERALENE [Suspect]
     Indication: PRODUCT USED FOR UNKNOWN INDICATION
     Route: 048
     Dates: start: 20080912, end: 20080915
  15. SECTRAL [Suspect]
     Indication: PRODUCT USED FOR UNKNOWN INDICATION
     Dosage: 400 mg, UNK
     Route: 048
     Dates: start: 20080912, end: 20080913
  16. SECTRAL [Suspect]
     Dosage: 400 mg, UNK
     Route: 048
     Dates: start: 20080914, end: 20080918
  17. DOLIPRANE [Concomitant]
     Indication: PRODUCT USED FOR UNKNOWN INDICATION
     Route: 048
     Dates: start: 20080912, end: 20080918
  18. IXEL [Suspect]
     Indication: PRODUCT USED FOR UNKNOWN INDICATION
     Dosage: 50 mg, UNK
     Route: 048
     Dates: start: 20080912, end: 20080918
  19. PREVISCAN [Concomitant]
     Indication: PRODUCT USED FOR UNKNOWN INDICATION
     Dosage: 20 mg, UNK
     Route: 048
     Dates: start: 20080912, end: 20080918
  20. PLASMA-LYTE [Concomitant]
     Indication: PRODUCT USED FOR UNKNOWN INDICATION
     Route: 042
     Dates: start: 20080913, end: 20080913
  21. TRIATEC (RAMIPRIL) [Concomitant]
     Indication: PRODUCT USED FOR UNKNOWN INDICATION
     Dosage: 5 mg, UNK
     Route: 048
     Dates: start: 20080913, end: 20080913
  22. ECONAZOLE [Concomitant]
     Indication: PRODUCT USED FOR UNKNOWN INDICATION
     Route: 061
     Dates: start: 20080915, end: 20080918

REACTIONS (3)
  - Coma [Recovering/Resolving]
  - Drug interaction [Recovering/Resolving]
  - Overdose [None]
